FAERS Safety Report 5202967-0 (Version None)
Quarter: 2006Q4

REPORT INFORMATION
  Report Type: 
  Country: None (occurrence: None)
  Receive Date: 20061016
  Receipt Date: 20060405
  Transmission Date: 20070319
  Serious: Yes (Other)
  Sender: FDA-Public Use
  Company Number: 2006031796

PATIENT
  Sex: Male

DRUGS (6)
  1. NEURONTIN [Suspect]
     Indication: MOOD SWINGS
     Dosage: 900 MG (1 D), ORAL
     Route: 048
     Dates: start: 20030803, end: 20030924
  2. CELEXA [Concomitant]
  3. ATIVAN [Concomitant]
  4. EFFEXOR XR [Concomitant]
  5. NICOTROL (NICOTINE) [Concomitant]
  6. FLEXERIL [Concomitant]

REACTIONS (2)
  - DRUG INEFFECTIVE [None]
  - SUICIDAL IDEATION [None]
